FAERS Safety Report 9083429 (Version 1)
Quarter: 2013Q1

REPORT INFORMATION
  Report Type: Spontaneous
  Country: PR (occurrence: PR)
  Receive Date: 20130130
  Receipt Date: 20130130
  Transmission Date: 20140127
  Serious: No
  Sender: FDA-Public Use
  Company Number: PR-ABBOTT-12P-131-0943014-00

PATIENT
  Sex: Female
  Weight: 24.97 kg

DRUGS (5)
  1. HUMIRA [Suspect]
     Indication: JUVENILE IDIOPATHIC ARTHRITIS
     Route: 058
     Dates: start: 201203, end: 201206
  2. HUMIRA [Suspect]
     Route: 058
     Dates: start: 201206, end: 201207
  3. HUMIRA [Suspect]
     Route: 058
     Dates: start: 20120825
  4. FOLIC ACID [Concomitant]
     Indication: JUVENILE IDIOPATHIC ARTHRITIS
     Dosage: 1 TABLET DAILY
     Route: 048
  5. METHOTREXATE [Concomitant]
     Indication: JUVENILE IDIOPATHIC ARTHRITIS
     Dosage: 10 TABLETS ONCE A WEEK
     Route: 048

REACTIONS (3)
  - Pyrexia [Recovered/Resolved]
  - Pharyngitis [Recovered/Resolved]
  - Pharyngitis [Recovered/Resolved]
